FAERS Safety Report 6268834-9 (Version None)
Quarter: 2009Q3

REPORT INFORMATION
  Report Type: 
  Country: None (occurrence: None)
  Receive Date: 20090710
  Receipt Date: 20090710
  Transmission Date: 20100115
  Serious: Yes (Disabling, Other)
  Sender: FDA-Public Use
  Company Number: None

PATIENT
  Sex: Female
  Weight: 65.318 kg

DRUGS (1)
  1. THYROID TAB [Suspect]
     Indication: HYPOTHYROIDISM
     Dosage: 1 GRAIN 4 TIMES DAILY BUCCAL
     Route: 002
     Dates: start: 20090703

REACTIONS (3)
  - DRUG DISPENSING ERROR [None]
  - HYPOTHYROIDISM [None]
  - PRODUCT QUALITY ISSUE [None]
